FAERS Safety Report 7563743-7 (Version None)
Quarter: 2011Q2

REPORT INFORMATION
  Report Type: 
  Country: None (occurrence: None)
  Receive Date: 20110622
  Receipt Date: 20110617
  Transmission Date: 20111010
  Serious: Yes (Other)
  Sender: FDA-Public Use
  Company Number: US-MERCK-1106USA02367

PATIENT
  Age: 62 Year
  Sex: Male

DRUGS (1)
  1. IVEMEND [Suspect]
     Indication: ANTIEMETIC SUPPORTIVE CARE
     Route: 041

REACTIONS (2)
  - FLUSHING [None]
  - CHEST PAIN [None]
